FAERS Safety Report 24542461 (Version 5)
Quarter: 2025Q1

REPORT INFORMATION
  Report Type: Report from Study
  Country: JP (occurrence: JP)
  Receive Date: 20241024
  Receipt Date: 20250207
  Transmission Date: 20250409
  Serious: Yes (Hospitalization, Other)
  Sender: ABBVIE
  Company Number: JP-JNJFOC-20240575473

PATIENT
  Age: 63 Year
  Sex: Female

DRUGS (5)
  1. IBRUTINIB [Suspect]
     Active Substance: IBRUTINIB
     Indication: Waldenstrom^s macroglobulinaemia
     Dosage: FORM STRENGTH 140 MG
     Route: 048
     Dates: start: 20240419, end: 202408
  2. IBRUTINIB [Suspect]
     Active Substance: IBRUTINIB
     Indication: Waldenstrom^s macroglobulinaemia
     Dosage: FORM STRENGTH 140 MG
     Route: 048
     Dates: start: 202408
  3. RITUXAN [Concomitant]
     Active Substance: RITUXIMAB
     Indication: Waldenstrom^s macroglobulinaemia
     Route: 042
     Dates: start: 20240419, end: 20240911
  4. HERBALS [Concomitant]
     Active Substance: HERBALS
     Indication: Reflux gastritis
     Route: 048
  5. HERBALS [Concomitant]
     Active Substance: HERBALS
     Indication: Reflux gastritis
     Route: 048
     Dates: start: 202407

REACTIONS (32)
  - Deafness unilateral [Not Recovered/Not Resolved]
  - Reflux gastritis [Recovered/Resolved]
  - Tooth fracture [Recovered/Resolved]
  - Dark circles under eyes [Not Recovered/Not Resolved]
  - Dyspepsia [Recovering/Resolving]
  - Inflammation [Unknown]
  - Feeling abnormal [Not Recovered/Not Resolved]
  - Vomiting [Unknown]
  - Throat irritation [Not Recovered/Not Resolved]
  - Pain in extremity [Recovered/Resolved]
  - Foreign body sensation in eyes [Recovered/Resolved]
  - Toothache [Not Recovered/Not Resolved]
  - Anxiety [Not Recovered/Not Resolved]
  - Gastric dilatation [Not Recovered/Not Resolved]
  - Haemoptysis [Recovered/Resolved]
  - Palpitations [Recovered/Resolved]
  - Hiccups [Not Recovered/Not Resolved]
  - Oropharyngeal pain [Recovering/Resolving]
  - Meniere^s disease [Not Recovered/Not Resolved]
  - Eczema [Not Recovered/Not Resolved]
  - Muscle spasms [Not Recovered/Not Resolved]
  - Eructation [Not Recovered/Not Resolved]
  - Blood immunoglobulin M increased [Recovered/Resolved]
  - Pruritus [Unknown]
  - Dental caries [Not Recovered/Not Resolved]
  - Product dose omission in error [Unknown]
  - Hypoaesthesia [Not Recovered/Not Resolved]
  - Treatment noncompliance [Unknown]
  - Brain fog [Not Recovered/Not Resolved]
  - Arrhythmia [Not Recovered/Not Resolved]
  - Gastrooesophageal reflux disease [Not Recovered/Not Resolved]
  - Abdominal distension [Not Recovered/Not Resolved]

NARRATIVE: CASE EVENT DATE: 20240101
